FAERS Safety Report 20335636 (Version 2)
Quarter: 2022Q1

REPORT INFORMATION
  Report Type: Spontaneous
  Country: AR (occurrence: AR)
  Receive Date: 20220114
  Receipt Date: 20220119
  Transmission Date: 20220423
  Serious: Yes (Other)
  Sender: FDA-Public Use
  Company Number: AR-PFIZER INC-202200015596

PATIENT
  Sex: Female

DRUGS (1)
  1. NEURONTIN [Suspect]
     Active Substance: GABAPENTIN
     Dosage: UNK

REACTIONS (2)
  - Product prescribing issue [Unknown]
  - Poisoning [Unknown]
